FAERS Safety Report 8416821-4 (Version None)
Quarter: 2012Q2

REPORT INFORMATION
  Report Type: 
  Country: None (occurrence: None)
  Receive Date: 20120606
  Receipt Date: 20120531
  Transmission Date: 20120825
  Serious: Yes (Life-Threatening)
  Sender: FDA-Public Use
  Company Number: CH-MERCK-1206USA00139

PATIENT
  Age: 63 Year
  Sex: Male

DRUGS (13)
  1. PRIMAXIN [Suspect]
     Indication: BACTERIAL INFECTION
     Route: 048
     Dates: start: 20110901, end: 20120228
  2. TASIGNA [Suspect]
     Indication: MYELOID LEUKAEMIA
     Route: 048
     Dates: start: 20101001
  3. NEXIUM [Suspect]
     Route: 048
  4. LANTUS [Concomitant]
     Route: 065
     Dates: start: 20110901
  5. LORAZEPAM [Concomitant]
     Route: 065
  6. CITALOPRAM HYDROBROMIDE [Suspect]
     Indication: DEPRESSION
     Route: 048
     Dates: start: 20110901, end: 20120101
  7. OXAZEPAM [Concomitant]
     Route: 065
  8. LYRICA [Concomitant]
     Route: 048
     Dates: start: 20120101
  9. ROCEPHIN [Suspect]
     Indication: BACTERIAL INFECTION
     Route: 042
     Dates: start: 20110901, end: 20120101
  10. ZINACEF [Suspect]
     Indication: BACTERIAL INFECTION
     Route: 042
     Dates: start: 20110901
  11. PRIMPERAN TAB [Concomitant]
     Route: 048
     Dates: start: 20110901
  12. ENOXAPARIN SODIUM [Suspect]
     Route: 058
     Dates: start: 20110901, end: 20120228
  13. ACETAMINOPHEN [Suspect]
     Indication: PAIN
     Route: 048
     Dates: start: 20110901, end: 20120101

REACTIONS (2)
  - CHOLESTATIC LIVER INJURY [None]
  - CONDITION AGGRAVATED [None]
